FAERS Safety Report 9367087 (Version 1)
Quarter: 2013Q2

REPORT INFORMATION
  Report Type: Spontaneous
  Country: GB (occurrence: GB)
  Receive Date: 20130625
  Receipt Date: 20130625
  Transmission Date: 20140414
  Serious: Yes (Other)
  Sender: FDA-Public Use
  Company Number: GB-JNJFOC-20130616175

PATIENT
  Sex: Female

DRUGS (1)
  1. NICORETTE INHALER [Suspect]
     Indication: SMOKING CESSATION THERAPY
     Dosage: 3-4 CARTRIDGES
     Route: 065
     Dates: start: 201001

REACTIONS (2)
  - Nicotine dependence [Unknown]
  - Intentional drug misuse [Unknown]
